FAERS Safety Report 6069771-5 (Version None)
Quarter: 2009Q1

REPORT INFORMATION
  Report Type: 
  Country: None (occurrence: None)
  Receive Date: 20090209
  Receipt Date: 20080813
  Transmission Date: 20090719
  Serious: No
  Sender: FDA-Public Use
  Company Number: US-ABBOTT-96P-163-0049106-00

PATIENT
  Age: 7 Year
  Sex: Female
  Weight: 18.16 kg

DRUGS (10)
  1. CYLERT [Suspect]
     Indication: ATTENTION DEFICIT/HYPERACTIVITY DISORDER
     Route: 048
     Dates: start: 19920101, end: 19960709
  2. CYLERT [Suspect]
  3. CYLERT [Suspect]
  4. CYLERT [Suspect]
  5. CYLERT [Suspect]
  6. CYLERT [Suspect]
  7. CYLERT [Suspect]
  8. CEFTIN [Concomitant]
     Indication: CHRONIC SINUSITIS
     Route: 048
     Dates: start: 19951201
  9. INTAL [Concomitant]
     Route: 055
  10. PROVENTIL [Concomitant]

REACTIONS (6)
  - ASCITES [None]
  - LISTLESS [None]
  - LIVER INJURY [None]
  - PORTAL HYPERTENSION [None]
  - SPLENOMEGALY [None]
  - WITHDRAWAL SYNDROME [None]
